FAERS Safety Report 24568196 (Version 1)
Quarter: 2024Q4

REPORT INFORMATION
  Report Type: Spontaneous
  Country: TN (occurrence: None)
  Receive Date: 20241031
  Receipt Date: 20241031
  Transmission Date: 20250115
  Serious: Yes (Other)
  Sender: INFORLIFE
  Company Number: TN-MLMSERVICE-20151102-0064606-1

PATIENT
  Age: 26 Year
  Sex: Male

DRUGS (5)
  1. LEVOFLOXACIN [Suspect]
     Active Substance: LEVOFLOXACIN
     Indication: Upper respiratory tract infection
     Dosage: FIRST COUPLE OF DAYS ; IN TOTAL
     Dates: start: 201310
  2. LEVOFLOXACIN [Suspect]
     Active Substance: LEVOFLOXACIN
     Indication: Upper respiratory tract infection
     Dates: start: 2013, end: 2013
  3. ACETAMINOPHEN [Concomitant]
     Active Substance: ACETAMINOPHEN
     Indication: Upper respiratory tract infection
     Dates: start: 2013
  4. METRONIDAZOLE [Concomitant]
     Active Substance: METRONIDAZOLE
     Indication: Upper respiratory tract infection
     Dates: start: 2013
  5. BICLOTYMOL [Concomitant]
     Active Substance: BICLOTYMOL
     Indication: Upper respiratory tract infection
     Dosage: ANTISEPTIC SPRAY ()
     Route: 048
     Dates: start: 2013

REACTIONS (1)
  - Drug reaction with eosinophilia and systemic symptoms [Recovered/Resolved]

NARRATIVE: CASE EVENT DATE: 20130101
